FAERS Safety Report 18049656 (Version 3)
Quarter: 2020Q3

REPORT INFORMATION
  Report Type: Spontaneous
  Country: US (occurrence: US)
  Receive Date: 20200721
  Receipt Date: 20200731
  Transmission Date: 20201103
  Serious: Yes (Hospitalization, Other)
  Sender: FDA-Public Use
  Company Number: US-TEVA-2020-US-1803326

PATIENT
  Age: 59 Year
  Sex: Female

DRUGS (18)
  1. OMNICEF [Concomitant]
     Active Substance: CEFDINIR
  2. VANTIN [Concomitant]
     Active Substance: CEFPODOXIME PROXETIL
  3. SYNRIBO [Suspect]
     Active Substance: OMACETAXINE MEPESUCCINATE
     Indication: ACUTE MYELOID LEUKAEMIA
     Dosage: FORM OF ADMIN: VIAL AND DOSE: 2.1MG/0.6ML SUBQ BID FOR 14 DAYS OF 28DAY CYCLE
     Route: 058
     Dates: start: 20200710
  4. LORAZEPAM. [Concomitant]
     Active Substance: LORAZEPAM
  5. TYLENOL EXTRA STRENGTH FO [Concomitant]
  6. ONDANSETRON ODT [Concomitant]
     Active Substance: ONDANSETRON
  7. PAXIL [Concomitant]
     Active Substance: PAROXETINE HYDROCHLORIDE
  8. CRESEMBA [Concomitant]
     Active Substance: ISAVUCONAZONIUM SULFATE
  9. VORICONAZOLE. [Concomitant]
     Active Substance: VORICONAZOLE
  10. GABAPENTIN. [Concomitant]
     Active Substance: GABAPENTIN
  11. BACTRIM [Concomitant]
     Active Substance: SULFAMETHOXAZOLE\TRIMETHOPRIM
  12. ZOFRAN [Concomitant]
     Active Substance: ONDANSETRON HYDROCHLORIDE
  13. EXEMESTANE. [Concomitant]
     Active Substance: EXEMESTANE
  14. VANCOMYCIN HYDROCHLORIDE. [Concomitant]
     Active Substance: VANCOMYCIN HYDROCHLORIDE
  15. SYNRIBO [Suspect]
     Active Substance: OMACETAXINE MEPESUCCINATE
     Indication: CHRONIC MYELOID LEUKAEMIA
  16. ALDARA [Concomitant]
     Active Substance: IMIQUIMOD
  17. ACYCLOVIR. [Concomitant]
     Active Substance: ACYCLOVIR
  18. IMODIUM A?D [Concomitant]
     Active Substance: LOPERAMIDE HYDROCHLORIDE

REACTIONS (7)
  - Diarrhoea [Recovered/Resolved]
  - Clostridium difficile infection [Unknown]
  - Nausea [Unknown]
  - Rash macular [Unknown]
  - Chills [Unknown]
  - Pyrexia [Not Recovered/Not Resolved]
  - Fatigue [Unknown]

NARRATIVE: CASE EVENT DATE: 202007
